FAERS Safety Report 18534742 (Version 6)
Quarter: 2021Q3

REPORT INFORMATION
  Report Type: Report from Study
  Country: US (occurrence: US)
  Receive Date: 20201123
  Receipt Date: 20210915
  Transmission Date: 20211014
  Serious: Yes (Hospitalization, Other)
  Sender: FDA-Public Use
  Company Number: US-BIOVITRUM-2020US5242

PATIENT
  Sex: Male

DRUGS (2)
  1. KINERET [Suspect]
     Active Substance: ANAKINRA
     Route: 058
  2. KINERET [Suspect]
     Active Substance: ANAKINRA
     Indication: PRODUCT USED FOR UNKNOWN INDICATION
     Route: 058
     Dates: start: 20170209

REACTIONS (5)
  - Inappropriate schedule of product administration [Unknown]
  - Gastric ulcer haemorrhage [Unknown]
  - Product dose omission issue [Unknown]
  - Drug ineffective [Unknown]
  - Gastric pH decreased [Unknown]
